FAERS Safety Report 12681956 (Version 1)
Quarter: 2016Q3

REPORT INFORMATION
  Report Type: Spontaneous
  Country: IT (occurrence: IT)
  Receive Date: 20160824
  Receipt Date: 20160824
  Transmission Date: 20161109
  Serious: Yes (Hospitalization)
  Sender: FDA-Public Use
  Company Number: IT-FRESENIUS KABI-FK201605715

PATIENT
  Age: 73 Year
  Sex: Male

DRUGS (2)
  1. ZOLEDRONIC ACID (MANUFACTURER UNKNOWN) [Suspect]
     Active Substance: ZOLEDRONIC ACID
     Indication: PLASMA CELL MYELOMA
     Route: 065
  2. TOTAL CORTICOSTEROIDS [Concomitant]

REACTIONS (2)
  - Fistula [Recovered/Resolved]
  - Osteonecrosis of jaw [Recovered/Resolved]
